FAERS Safety Report 24124107 (Version 1)
Quarter: 2024Q3

REPORT INFORMATION
  Report Type: Spontaneous
  Country: US (occurrence: US)
  Receive Date: 20240723
  Receipt Date: 20240723
  Transmission Date: 20241017
  Serious: No
  Sender: BAUSCH AND LOMB
  Company Number: US-BAUSCH-BL-2024-010807

PATIENT
  Sex: Male

DRUGS (1)
  1. JUBLIA [Suspect]
     Active Substance: EFINACONAZOLE
     Indication: Onychomycosis
     Route: 065
     Dates: start: 202308

REACTIONS (3)
  - Disease recurrence [Not Recovered/Not Resolved]
  - Onychomycosis [Not Recovered/Not Resolved]
  - Therapy interrupted [Unknown]
